FAERS Safety Report 6041772-2 (Version None)
Quarter: 2009Q1

REPORT INFORMATION
  Report Type: 
  Country: None (occurrence: None)
  Receive Date: 20090116
  Receipt Date: 20090114
  Transmission Date: 20090719
  Serious: Yes (Other)
  Sender: FDA-Public Use
  Company Number: US-PFIZER INC-2008095352

PATIENT
  Sex: Female

DRUGS (2)
  1. LYRICA [Suspect]
     Indication: PAIN
     Dates: start: 20060701, end: 20081001
  2. FENTANYL [Suspect]
     Indication: PAIN

REACTIONS (9)
  - COMPRESSION FRACTURE [None]
  - DIABETES MELLITUS [None]
  - FEELING ABNORMAL [None]
  - HALLUCINATION [None]
  - HYPERTENSION [None]
  - PSYCHOTIC DISORDER [None]
  - STAPHYLOCOCCAL INFECTION [None]
  - SURGERY [None]
  - WEIGHT INCREASED [None]
